FAERS Safety Report 24548335 (Version 1)
Quarter: 2024Q4

REPORT INFORMATION
  Report Type: Spontaneous
  Country: SI (occurrence: SI)
  Receive Date: 20241025
  Receipt Date: 20241025
  Transmission Date: 20250115
  Serious: Yes (Other)
  Sender: CELLTRION
  Company Number: None

PATIENT

DRUGS (11)
  1. TRUXIMA [Suspect]
     Active Substance: RITUXIMAB-ABBS
     Indication: B-cell lymphoma
     Dosage: 600 MG EVERY 3 WEEKS
     Route: 042
     Dates: start: 20240219, end: 20240219
  2. TRUXIMA [Suspect]
     Active Substance: RITUXIMAB-ABBS
     Indication: B-cell lymphoma
     Dosage: 600 MG EVERY 3 WEEKS
     Route: 042
     Dates: start: 20240219, end: 20240219
  3. BENDAMUSTINE [Concomitant]
     Active Substance: BENDAMUSTINE
     Dosage: 90 MG/MM2
     Dates: start: 20240219, end: 20240220
  4. AMOXICILLIN\CLAVULANIC ACID [Concomitant]
     Active Substance: AMOXICILLIN\CLAVULANIC ACID
     Dosage: 1.2G/8H
     Dates: start: 20240213
  5. QUETIAPINE FUMARATE [Concomitant]
     Active Substance: QUETIAPINE FUMARATE
     Dosage: 25 MG EVERY 1 DAY
     Route: 048
  6. FRAGMIN [Concomitant]
     Active Substance: DALTEPARIN SODIUM
     Dosage: 1 DF EVERY 24 HOURS (5.000 I.E./0,2 ML; 5000 IE/24H SC; ADDITIONAL INFORMATION ON DRUG: BZ)
     Route: 058
  7. RAMIPRIL [Concomitant]
     Active Substance: RAMIPRIL
     Dosage: 10 MG EVERY 1 DAY
     Route: 048
  8. LACIDIPINE [Concomitant]
     Active Substance: LACIDIPINE
     Dosage: 4 MG EVERY 1 DAY
     Route: 048
  9. DIPYRONE [Concomitant]
     Active Substance: DIPYRONE
     Dosage: 500 MG, AS NECESSARY
     Route: 048
  10. ACETAMINOPHEN\TRAMADOL HYDROCHLORIDE [Concomitant]
     Active Substance: ACETAMINOPHEN\TRAMADOL HYDROCHLORIDE
     Dosage: 1 DF (37,5 MG/325 MG), AS NECESSARY
     Route: 048
  11. REGLAN [Concomitant]
     Active Substance: METOCLOPRAMIDE HYDROCHLORIDE
     Dosage: 10 MG, AS NECESSARY
     Route: 048

REACTIONS (5)
  - Angina pectoris [Recovered/Resolved]
  - Dyspnoea [Recovered/Resolved]
  - Blood pressure decreased [Recovered/Resolved]
  - Nausea [Recovered/Resolved]
  - Chills [Recovered/Resolved]

NARRATIVE: CASE EVENT DATE: 20240219
